FAERS Safety Report 14176178 (Version 8)
Quarter: 2020Q4

REPORT INFORMATION
  Report Type: Spontaneous
  Country: CA (occurrence: CA)
  Receive Date: 20171109
  Receipt Date: 20201124
  Transmission Date: 20210113
  Serious: Yes (Hospitalization, Other)
  Sender: FDA-Public Use
  Company Number: CA-PFIZER INC-2017352635

PATIENT
  Age: 41 Year
  Sex: Female

DRUGS (3)
  1. LEFLUNOMIDE. [Concomitant]
     Active Substance: LEFLUNOMIDE
     Dosage: 20 MG, DAILY
     Route: 048
  2. LEFLUNOMIDE. [Concomitant]
     Active Substance: LEFLUNOMIDE
     Indication: FIBROMYALGIA
     Dosage: 20 MG, Q 2 DAYS
     Route: 048
     Dates: start: 201909
  3. XELJANZ [Suspect]
     Active Substance: TOFACITINIB CITRATE
     Indication: RHEUMATOID ARTHRITIS
     Dosage: 5 MG, 2X/DAY
     Route: 048
     Dates: start: 20170806

REACTIONS (25)
  - Thrombosis [Not Recovered/Not Resolved]
  - Drug ineffective [Unknown]
  - Abdominal distension [Unknown]
  - Burning sensation [Unknown]
  - Blood iron decreased [Unknown]
  - Sensitivity to weather change [Unknown]
  - Chest pain [Unknown]
  - Back pain [Not Recovered/Not Resolved]
  - Therapeutic product effect incomplete [Unknown]
  - Condition aggravated [Unknown]
  - Headache [Not Recovered/Not Resolved]
  - Fatigue [Not Recovered/Not Resolved]
  - Periarthritis [Unknown]
  - Insomnia [Unknown]
  - Vision blurred [Not Recovered/Not Resolved]
  - Synovitis [Unknown]
  - Haemorrhage [Not Recovered/Not Resolved]
  - Pain [Unknown]
  - Dyspnoea [Not Recovered/Not Resolved]
  - Abdominal discomfort [Not Recovered/Not Resolved]
  - Constipation [Unknown]
  - Dizziness [Not Recovered/Not Resolved]
  - Disease recurrence [Unknown]
  - Neck pain [Unknown]
  - Scoliosis [Unknown]

NARRATIVE: CASE EVENT DATE: 2017
